FAERS Safety Report 21556071 (Version 1)
Quarter: 2022Q4

REPORT INFORMATION
  Report Type: Spontaneous
  Country: IN (occurrence: IN)
  Receive Date: 20221104
  Receipt Date: 20221104
  Transmission Date: 20230113
  Serious: Yes (Other)
  Sender: FDA-Public Use
  Company Number: IN-PFIZER INC-2021830691

PATIENT
  Age: 45 Year
  Sex: Male

DRUGS (1)
  1. LORLATINIB [Suspect]
     Active Substance: LORLATINIB
     Dosage: 100 MG, 1X/DAY
     Route: 048
     Dates: start: 20210621, end: 2022

REACTIONS (5)
  - Pericardial fibrosis [Unknown]
  - Hypertriglyceridaemia [Unknown]
  - Rash [Recovering/Resolving]
  - Malaise [Unknown]
  - Neoplasm progression [Unknown]
